FAERS Safety Report 21810727 (Version 7)
Quarter: 2023Q2

REPORT INFORMATION
  Report Type: Spontaneous
  Country: US (occurrence: US)
  Receive Date: 20230103
  Receipt Date: 20230403
  Transmission Date: 20230721
  Serious: No
  Sender: FDA-Public Use
  Company Number: US-PFIZER INC-PV202200130852

PATIENT
  Age: 64 Year
  Sex: Female

DRUGS (1)
  1. IBRANCE [Suspect]
     Active Substance: PALBOCICLIB
     Indication: Breast cancer metastatic
     Dosage: 125 MG

REACTIONS (16)
  - Thirst [Unknown]
  - Fatigue [Unknown]
  - Nausea [Unknown]
  - Decreased appetite [Unknown]
  - Laboratory test abnormal [Unknown]
  - Respiratory tract infection [Not Recovered/Not Resolved]
  - Rash [Not Recovered/Not Resolved]
  - Somnolence [Unknown]
  - White blood cell count decreased [Unknown]
  - Alopecia [Unknown]
  - Hair texture abnormal [Unknown]
  - Blood pressure decreased [Unknown]
  - Dizziness [Unknown]
  - Peripheral swelling [Unknown]
  - Lymphoedema [Unknown]
  - Full blood count abnormal [Unknown]

NARRATIVE: CASE EVENT DATE: 20230122
